FAERS Safety Report 18351964 (Version 2)
Quarter: 2020Q4

REPORT INFORMATION
  Report Type: Report from Study
  Country: US (occurrence: US)
  Receive Date: 20201006
  Receipt Date: 20201022
  Transmission Date: 20210114
  Serious: Yes (Hospitalization)
  Sender: FDA-Public Use
  Company Number: US-JNJFOC-A-NJ2020-201807

PATIENT
  Age: 50 Year
  Sex: Male
  Weight: 98.52 kg

DRUGS (6)
  1. VELETRI [Suspect]
     Active Substance: EPOPROSTENOL
     Indication: PULMONARY ARTERIAL HYPERTENSION
     Dosage: 10 NG/KG, PER MIN
     Route: 042
  2. ELIQUIS [Concomitant]
     Active Substance: APIXABAN
  3. VELETRI [Suspect]
     Active Substance: EPOPROSTENOL
     Dosage: 12 NG/KG, PER MIN
     Route: 042
  4. SILDENAFIL CITRATE. [Concomitant]
     Active Substance: SILDENAFIL CITRATE
  5. VELETRI [Suspect]
     Active Substance: EPOPROSTENOL
     Dosage: 25 NG/KG, PER MIN
     Route: 042
  6. VELETRI [Suspect]
     Active Substance: EPOPROSTENOL
     Dosage: 20 NG/KG, PER MIN
     Route: 042

REACTIONS (18)
  - Flushing [Unknown]
  - Nasal congestion [Unknown]
  - Infusion site urticaria [Unknown]
  - Catheter site erythema [Unknown]
  - Erythema [Unknown]
  - Catheter site infection [Unknown]
  - Heart rate increased [Not Recovered/Not Resolved]
  - Dizziness postural [Recovered/Resolved]
  - Pain in extremity [Unknown]
  - Dyspnoea [Recovering/Resolving]
  - Atrial fibrillation [Not Recovered/Not Resolved]
  - Rash macular [Unknown]
  - Palpitations [Not Recovered/Not Resolved]
  - Pain in jaw [Unknown]
  - Neuralgia [Not Recovered/Not Resolved]
  - Urticaria [Unknown]
  - Headache [Recovering/Resolving]
  - Myalgia [Not Recovered/Not Resolved]

NARRATIVE: CASE EVENT DATE: 20200402
